FAERS Safety Report 4974874-X (Version None)
Quarter: 2006Q1

REPORT INFORMATION
  Report Type: 
  Country: None (occurrence: None)
  Receive Date: 20060227
  Receipt Date: 20051103
  Transmission Date: 20060701
  Serious: No
  Sender: FDA-Public Use
  Company Number: PHEH2005US12195

PATIENT
  Age: 75 Year
  Sex: Female

DRUGS (1)
  1. ENABLEX [Suspect]
     Indication: HYPERTONIC BLADDER
     Dosage: 15 MG QD
     Dates: start: 20051022

REACTIONS (3)
  - DRY MOUTH [None]
  - DYSPEPSIA [None]
  - READING DISORDER [None]
